FAERS Safety Report 4633283-3 (Version None)
Quarter: 2005Q2

REPORT INFORMATION
  Report Type: 
  Country: None (occurrence: None)
  Receive Date: 20050408
  Receipt Date: 20050329
  Transmission Date: 20051028
  Serious: Yes (Hospitalization)
  Sender: FDA-Public Use
  Company Number: 2005UW04211

PATIENT
  Age: 48 Year
  Sex: Male

DRUGS (11)
  1. CRESTOR [Suspect]
     Dosage: 20 M G QD PO
     Route: 048
     Dates: start: 20040601, end: 20050221
  2. LIPITOR [Concomitant]
  3. VERAPAMIL [Concomitant]
  4. ASPIRIN [Concomitant]
  5. INSULIN [Concomitant]
  6. ATENOLOL [Concomitant]
  7. ALTACE [Concomitant]
  8. DOXAZOSIN [Concomitant]
  9. INDAPAMINE [Concomitant]
  10. AMOXICILLIN [Concomitant]
  11. CIPRO   MILES [Concomitant]

REACTIONS (9)
  - HAEMATURIA [None]
  - HYPERVOLAEMIA [None]
  - PROTEINURIA [None]
  - PULMONARY OEDEMA [None]
  - RENAL FAILURE ACUTE [None]
  - RENAL TUBULAR NECROSIS [None]
  - RHABDOMYOLYSIS [None]
  - UPPER RESPIRATORY TRACT INFECTION [None]
  - URINARY CASTS [None]
